FAERS Safety Report 15823040 (Version 1)
Quarter: 2019Q1

REPORT INFORMATION
  Report Type: Spontaneous
  Country: US (occurrence: US)
  Receive Date: 20190114
  Receipt Date: 20190114
  Transmission Date: 20190417
  Serious: No
  Sender: FDA-Public Use
  Company Number: US-PFIZER INC-2019016666

PATIENT
  Age: 20 Year
  Sex: Female

DRUGS (1)
  1. XELJANZ [Suspect]
     Active Substance: TOFACITINIB CITRATE
     Dosage: 10 MG, 2X/DAY (XELJANZ 10 MG ONE TABLET TWICE A DAY)

REACTIONS (2)
  - Abdominal distension [Unknown]
  - Constipation [Unknown]
